FAERS Safety Report 5309425-3 (Version None)
Quarter: 2007Q2

REPORT INFORMATION
  Report Type: 
  Country: None (occurrence: None)
  Receive Date: 20070425
  Receipt Date: 20070425
  Transmission Date: 20071010
  Serious: No
  Sender: FDA-Public Use
  Company Number: None

PATIENT
  Age: 70 Year
  Sex: Female

DRUGS (1)
  1. ZETIA [Suspect]
     Indication: BLOOD CHOLESTEROL
     Dosage: 10 MG ONE PER DAY ORAL
     Route: 048
     Dates: start: 20061201, end: 20070220

REACTIONS (9)
  - CHILLS [None]
  - DRY EYE [None]
  - DRY SKIN [None]
  - FATIGUE [None]
  - MYALGIA [None]
  - PAIN OF SKIN [None]
  - PERIPHERAL COLDNESS [None]
  - SKIN CHAPPED [None]
  - URTICARIA [None]
